FAERS Safety Report 6221697-X (Version None)
Quarter: 2009Q2

REPORT INFORMATION
  Report Type: 
  Country: None (occurrence: None)
  Receive Date: 20090610
  Receipt Date: 20090604
  Transmission Date: 20091009
  Serious: Yes (Other)
  Sender: FDA-Public Use
  Company Number: FR-GILEAD-2009-0022438

PATIENT
  Sex: Male

DRUGS (2)
  1. VIREAD [Suspect]
     Indication: HEPATITIS B
  2. HEPSERA [Suspect]
     Indication: HEPATITIS B

REACTIONS (1)
  - LYMPHOMA [None]
